FAERS Safety Report 13600362 (Version 1)
Quarter: 2017Q2

REPORT INFORMATION
  Report Type: Spontaneous
  Country: US (occurrence: US)
  Receive Date: 20170601
  Receipt Date: 20170601
  Transmission Date: 20170830
  Serious: No
  Sender: FDA-Public Use
  Company Number: US-PFIZER INC-2017236170

PATIENT
  Age: 49 Year
  Sex: Male
  Weight: 108.86 kg

DRUGS (1)
  1. VIAGRA [Suspect]
     Active Substance: SILDENAFIL CITRATE
     Dosage: 25 MG, ONE TIME AT NIGHT
     Route: 048
     Dates: start: 201701

REACTIONS (2)
  - Ejaculation disorder [Unknown]
  - Erection increased [Unknown]
